FAERS Safety Report 6104659-2 (Version None)
Quarter: 2009Q1

REPORT INFORMATION
  Report Type: 
  Country: None (occurrence: None)
  Receive Date: 20090304
  Receipt Date: 20090216
  Transmission Date: 20090719
  Serious: Yes (Hospitalization)
  Sender: FDA-Public Use
  Company Number: 000415

PATIENT
  Age: 47 Year
  Sex: Male

DRUGS (3)
  1. FAMOTIDINE [Suspect]
     Indication: CHOLECYSTITIS ACUTE
     Dosage: ORAL
     Route: 048
  2. MORPHINE [Suspect]
     Indication: CHOLECYSTITIS ACUTE
  3. CEFOXITIN [Suspect]
     Indication: CHOLECYSTITIS ACUTE

REACTIONS (2)
  - HEPATITIS ACUTE [None]
  - RENAL IMPAIRMENT [None]
